FAERS Safety Report 7301125-3 (Version None)
Quarter: 2011Q1

REPORT INFORMATION
  Report Type: 
  Country: None (occurrence: None)
  Receive Date: 20110218
  Receipt Date: 20101221
  Transmission Date: 20110831
  Serious: Yes (Other)
  Sender: FDA-Public Use
  Company Number: US-BAYER-201030501NA

PATIENT
  Sex: Female
  Weight: 63.492 kg

DRUGS (6)
  1. UNKNOWN [Concomitant]
     Indication: ATTENTION DEFICIT/HYPERACTIVITY DISORDER
     Dosage: UNK
  2. TRAZODONE [Concomitant]
     Indication: PRODUCT USED FOR UNKNOWN INDICATION
  3. TOPAMAX [Concomitant]
     Indication: PRODUCT USED FOR UNKNOWN INDICATION
  4. IBUPROFEN [Concomitant]
     Indication: PRODUCT USED FOR UNKNOWN INDICATION
  5. YAZ [Suspect]
     Indication: PREMENSTRUAL SYNDROME
     Dosage: UNK UNK, UNK
     Route: 048
     Dates: start: 20090501, end: 20091001
  6. YAZ [Suspect]
     Indication: DYSMENORRHOEA

REACTIONS (4)
  - DEEP VEIN THROMBOSIS [None]
  - CONTUSION [None]
  - THROMBOSIS [None]
  - BURNING SENSATION [None]
